FAERS Safety Report 7843594-6 (Version None)
Quarter: 2011Q4

REPORT INFORMATION
  Report Type: 
  Country: None (occurrence: None)
  Receive Date: 20111014
  Receipt Date: 20110929
  Transmission Date: 20120403
  Serious: Yes (Hospitalization, Other)
  Sender: FDA-Public Use
  Company Number: DSA_42619_2010

PATIENT
  Age: 80 Year
  Sex: Female

DRUGS (6)
  1. ACETAMINOPHEN [Suspect]
     Indication: ERYTHEMA MULTIFORME
     Dosage: DF
  2. DICLOFENAC SODIUM [Suspect]
     Indication: ERYTHEMA MULTIFORME
     Dosage: DF, GIVEN TWICE AT NIGHT ON ADMISSION DAY, RECTAL
     Route: 054
  3. DILTIAZEM HYDROCHLORIDE [Suspect]
     Indication: HYPERTENSION
     Dosage: 200 MG, QD, ORAL
     Route: 048
     Dates: start: 20080101
  4. SUCRALFATE [Suspect]
     Indication: ERYTHEMA MULTIFORME
     Dosage: DF
  5. TELMISARTAN [Suspect]
     Indication: PRODUCT USED FOR UNKNOWN INDICATION
     Dosage: DF ORAL
     Route: 048
  6. CEFDINIR [Suspect]
     Indication: PRODUCT USED FOR UNKNOWN INDICATION
     Dosage: DF

REACTIONS (6)
  - DERMATITIS EXFOLIATIVE [None]
  - PYREXIA [None]
  - RASH PUSTULAR [None]
  - MALAISE [None]
  - FATIGUE [None]
  - WHITE BLOOD CELL COUNT INCREASED [None]
